FAERS Safety Report 9858769 (Version 1)
Quarter: 2013Q4

REPORT INFORMATION
  Report Type: Spontaneous
  Country: US (occurrence: None)
  Receive Date: 20131028
  Receipt Date: 20131028
  Transmission Date: 20140711
  Serious: No
  Sender: FDA-Public Use
  Company Number: 2013US002252

PATIENT
  Age: 79 Year
  Sex: Male
  Weight: 114 kg

DRUGS (14)
  1. ICLUSIG (PONATINIB) TABLET, 45MG [Suspect]
     Indication: CHRONIC MYELOID LEUKAEMIA
     Route: 048
     Dates: start: 20130207
  2. LASIX (FUROSEMIDE) [Concomitant]
  3. ASA (ASA) [Concomitant]
  4. VENLAFAXINE (VENLAFAXINE) [Concomitant]
  5. DOXAZOSIN (DOXAZOSIN) [Concomitant]
  6. FLOMAX (TAMSULOSIN HYDROCHLORIDE) [Concomitant]
  7. LIPITOR (ATORVASTATIN CALCIUM) [Concomitant]
  8. LEVOTHYROXINE (LEVOTHYROXINE) [Concomitant]
  9. METOPROLOL (METOPROLOL) [Concomitant]
  10. ISOSORBIDE (ISOSORBIDE) [Concomitant]
  11. DIGOXIN (DIGOXIN) [Concomitant]
  12. NEURONTIN (GABAPENTIN) [Concomitant]
  13. WARFARIN (WARFARIN) [Concomitant]
  14. STOOL SOFTENER (DOCUSATE SODIUM) [Concomitant]

REACTIONS (2)
  - Musculoskeletal chest pain [None]
  - Abdominal pain upper [None]
